FAERS Safety Report 6006728-4 (Version None)
Quarter: 2008Q4

REPORT INFORMATION
  Report Type: 
  Country: None (occurrence: None)
  Receive Date: 20081217
  Receipt Date: 20081205
  Transmission Date: 20090506
  Serious: Yes (Other)
  Sender: FDA-Public Use
  Company Number: US-WYE-H07111108

PATIENT
  Age: 12 Year
  Sex: Male
  Weight: 35.64 kg

DRUGS (8)
  1. BENEFIX [Suspect]
     Indication: FACTOR IX DEFICIENCY
     Dosage: PROPHYLAXIS EVERY TUES AND THURS-1880 UNITS
     Route: 042
     Dates: start: 20010101
  2. FLONASE [Concomitant]
     Dosage: AS NEEDED
     Route: 065
  3. EMLA [Interacting]
     Indication: INJECTION SITE ANAESTHESIA
     Dosage: APPLIES ON ARM PRIOR TO BENEFIX INFUSION
     Route: 061
  4. CLARITIN [Concomitant]
     Dosage: AS NEEDED
     Route: 065
  5. MULTI-VITAMINS [Concomitant]
     Dosage: DAILY
     Route: 065
  6. RISPERDAL [Concomitant]
     Indication: AFFECTIVE DISORDER
     Dosage: DAILY
     Route: 065
  7. PENICILLIN G [Concomitant]
     Indication: SPLENECTOMY
     Dosage: DOSE NOT SPECIFIED - FREQUENCY TWICE A DAY
     Route: 065
  8. ALBUTEROL [Concomitant]
     Dosage: AS NEEDED
     Route: 065

REACTIONS (9)
  - DRUG INTERACTION [None]
  - HYPERSENSITIVITY [None]
  - INJECTION SITE IRRITATION [None]
  - INJECTION SITE PRURITUS [None]
  - INJECTION SITE RASH [None]
  - INJECTION SITE REACTION [None]
  - PYREXIA [None]
  - RASH MACULO-PAPULAR [None]
  - WRONG TECHNIQUE IN DRUG USAGE PROCESS [None]
